FAERS Safety Report 11563463 (Version 1)
Quarter: 2015Q3

REPORT INFORMATION
  Report Type: Spontaneous
  Country: US (occurrence: US)
  Receive Date: 20150928
  Receipt Date: 20150928
  Transmission Date: 20151125
  Serious: No
  Sender: FDA-Public Use
  Company Number: US-WATSON-2015-14432

PATIENT
  Age: 5 Month
  Sex: Male

DRUGS (1)
  1. ZENPEP [Suspect]
     Active Substance: PANCRELIPASE\PANCRELIPASE AMYLASE\PANCRELIPASE LIPASE\PANCRELIPASE PROTEASE
     Indication: PANCREATIC INSUFFICIENCY
     Dosage: 9,000 USP UNITS WITH EVERY BOTTLE
     Route: 048
     Dates: start: 201502

REACTIONS (10)
  - Frequent bowel movements [Not Recovered/Not Resolved]
  - Wrong technique in product usage process [Unknown]
  - Diarrhoea [Unknown]
  - Abdominal pain upper [Not Recovered/Not Resolved]
  - Eye pruritus [Not Recovered/Not Resolved]
  - Rash [Unknown]
  - Flatulence [Not Recovered/Not Resolved]
  - Constipation [Unknown]
  - Pruritus [Not Recovered/Not Resolved]
  - Infantile colic [Not Recovered/Not Resolved]

NARRATIVE: CASE EVENT DATE: 201505
